FAERS Safety Report 16541451 (Version 1)
Quarter: 2019Q3

REPORT INFORMATION
  Report Type: Spontaneous
  Country: BR (occurrence: BR)
  Receive Date: 20190708
  Receipt Date: 20190708
  Transmission Date: 20191004
  Serious: Yes (Other)
  Sender: FDA-Public Use
  Company Number: BR-CELGENEUS-BRA-20190610829

PATIENT
  Sex: Female

DRUGS (2)
  1. DERSANI [Concomitant]
     Indication: SKIN EXFOLIATION
     Route: 061
     Dates: start: 201906
  2. VIDAZA [Suspect]
     Active Substance: AZACITIDINE
     Indication: MYELODYSPLASTIC SYNDROME
     Dosage: 100 MILLIGRAM
     Route: 042
     Dates: start: 20190531

REACTIONS (3)
  - Application site discolouration [Unknown]
  - Application site exfoliation [Unknown]
  - Application site erythema [Unknown]

NARRATIVE: CASE EVENT DATE: 2019
